FAERS Safety Report 9180203 (Version 1)
Quarter: 2013Q1

REPORT INFORMATION
  Report Type: Spontaneous
  Country: IN (occurrence: IN)
  Receive Date: 20130321
  Receipt Date: 20130321
  Transmission Date: 20140127
  Serious: Yes (Hospitalization)
  Sender: FDA-Public Use
  Company Number: IN-009507513-1303IND008437

PATIENT
  Age: 55 Year
  Sex: Female

DRUGS (2)
  1. VIRAFERONPEG [Suspect]
     Dosage: 80 MICROGRAM, QW
     Route: 065
     Dates: end: 2013
  2. REBETOL [Suspect]
     Route: 048

REACTIONS (1)
  - Ascites [Unknown]
